FAERS Safety Report 21718261 (Version 1)
Quarter: 2022Q4

REPORT INFORMATION
  Report Type: Spontaneous
  Country: US (occurrence: US)
  Receive Date: 20221212
  Receipt Date: 20221212
  Transmission Date: 20230112
  Serious: Yes (Hospitalization, Disabling, Other)
  Sender: FDA-Public Use
  Company Number: US-MERCK-1201USA00775

PATIENT
  Sex: Female
  Weight: 53.524 kg

DRUGS (6)
  1. FOSAMAX [Suspect]
     Active Substance: ALENDRONATE SODIUM
     Indication: Osteoporosis
     Dosage: 10 MG, QD
     Route: 048
     Dates: start: 19990506, end: 2003
  2. BONIVA [Suspect]
     Active Substance: IBANDRONATE SODIUM
     Indication: Osteoporosis
     Dates: start: 199905, end: 200811
  3. ACTONEL [Suspect]
     Active Substance: RISEDRONATE SODIUM
     Dosage: 35 MG, QW
     Route: 048
     Dates: start: 2003, end: 200811
  4. PENTASA [Concomitant]
     Active Substance: MESALAMINE
  5. PREMPRO [Concomitant]
     Active Substance: ESTROGENS, CONJUGATED\MEDROXYPROGESTERONE ACETATE
     Indication: Osteoporosis
     Route: 048
     Dates: start: 1999
  6. PREMPRO [Concomitant]
     Active Substance: ESTROGENS, CONJUGATED\MEDROXYPROGESTERONE ACETATE
     Indication: Osteopenia

REACTIONS (73)
  - Femur fracture [Not Recovered/Not Resolved]
  - Device failure [Unknown]
  - Appendicitis perforated [Unknown]
  - Blood potassium decreased [Recovering/Resolving]
  - Fall [Unknown]
  - Dehydration [Unknown]
  - Small intestinal obstruction [Recovering/Resolving]
  - Abdominal hernia [Unknown]
  - Abdominal adhesions [Unknown]
  - Nephrocalcinosis [Unknown]
  - Crohn^s disease [Recovering/Resolving]
  - Arrhythmia [Unknown]
  - Polyarthritis [Unknown]
  - Vitamin D deficiency [Unknown]
  - Calcium deficiency [Unknown]
  - Wrist fracture [Unknown]
  - Pain [Unknown]
  - Limb asymmetry [Unknown]
  - Hepatic cyst [Unknown]
  - Renal cyst [Unknown]
  - Abdominal hernia [Unknown]
  - Ovarian disorder [Unknown]
  - Breast hyperplasia [Unknown]
  - Fibromyalgia [Unknown]
  - Trigger points [Unknown]
  - Breast calcifications [Unknown]
  - Breast disorder [Unknown]
  - Hypertension [Unknown]
  - Fatigue [Unknown]
  - Cough [Unknown]
  - Seborrhoeic keratosis [Unknown]
  - Limb deformity [Unknown]
  - Fibrocystic breast disease [Unknown]
  - Acquired oesophageal web [Unknown]
  - Hyperlipidaemia [Unknown]
  - Polyp [Unknown]
  - Sinusitis [Unknown]
  - Hyperaesthesia teeth [Recovered/Resolved]
  - Dental caries [Unknown]
  - Device intolerance [Recovered/Resolved]
  - Contusion [Unknown]
  - Osteoporosis [Unknown]
  - Haematoma [Unknown]
  - Seroma [Unknown]
  - Sacral pain [Unknown]
  - Abdominal discomfort [Unknown]
  - Abdominal pain upper [Unknown]
  - Gastrooesophageal reflux disease [Unknown]
  - Chronic gastritis [Unknown]
  - Arthralgia [Unknown]
  - Back pain [Unknown]
  - Ventricular hypertrophy [Unknown]
  - Ligament sprain [Unknown]
  - Fall [Unknown]
  - Incision site haemorrhage [Unknown]
  - Anxiety [Unknown]
  - Depression [Unknown]
  - Cough [Unknown]
  - Endometriosis [Unknown]
  - Dizziness [Unknown]
  - Hot flush [Unknown]
  - Myofascial pain syndrome [Recovering/Resolving]
  - Cervicogenic headache [Not Recovered/Not Resolved]
  - Neck pain [Unknown]
  - Headache [Unknown]
  - Migraine [Unknown]
  - Nausea [Unknown]
  - Photosensitivity reaction [Unknown]
  - Hyperacusis [Unknown]
  - Spinal deformity [Unknown]
  - Abdominal pain upper [Unknown]
  - Abnormal faeces [Recovered/Resolved]
  - Diarrhoea [Unknown]

NARRATIVE: CASE EVENT DATE: 19990101
